FAERS Safety Report 10155302 (Version 2)
Quarter: 2014Q4

REPORT INFORMATION
  Report Type: Spontaneous
  Country: CA (occurrence: CA)
  Receive Date: 20140506
  Receipt Date: 20141009
  Transmission Date: 20150528
  Serious: Yes (Other)
  Sender: FDA-Public Use
  Company Number: CA-PFIZER INC-2014124091

PATIENT
  Age: 70 Year
  Sex: Female
  Weight: 72.56 kg

DRUGS (4)
  1. TECTA [Suspect]
     Active Substance: PANTOPRAZOLE MAGNESIUM
     Indication: GASTROOESOPHAGEAL REFLUX DISEASE
     Dosage: 40 MG, 1X/DAY(1 PILL, QD)
     Route: 048
     Dates: start: 20130621, end: 20130729
  2. ROPINIROLE. [Concomitant]
     Active Substance: ROPINIROLE
     Dosage: 25 UG, UNK
  3. APO-HYDRO [Concomitant]
     Active Substance: HYDROCHLOROTHIAZIDE
     Dosage: 25 MG, UNK
  4. APO-AMLODIPINE [Concomitant]
     Dosage: 10 MG, UNK

REACTIONS (7)
  - Blister [Recovering/Resolving]
  - Skin exfoliation [Recovering/Resolving]
  - Urticaria [Recovering/Resolving]
  - Pruritus [Recovering/Resolving]
  - Flushing [Recovering/Resolving]
  - Face oedema [Recovering/Resolving]
  - Hot flush [Recovering/Resolving]

NARRATIVE: CASE EVENT DATE: 20130726
